FAERS Safety Report 8927441 (Version 1)
Quarter: 2012Q4

REPORT INFORMATION
  Report Type: 
  Country: IT (occurrence: IT)
  Receive Date: 20121127
  Receipt Date: 20121127
  Transmission Date: 20130627
  Serious: Yes (Other)
  Sender: FDA-Public Use
  Company Number: PHHY2012IT097941

PATIENT
  Age: 80 Year
  Sex: Male

DRUGS (1)
  1. RIVASTIGMINE [Suspect]
     Indication: DEMENTIA ALZHEIMER^S TYPE
     Dosage: 0.5 mg/24 hour, Daily
     Route: 062

REACTIONS (4)
  - Dermatitis contact [Recovered/Resolved]
  - Skin lesion [Recovered/Resolved]
  - Eczema [Recovered/Resolved]
  - Prurigo [Recovered/Resolved]
